FAERS Safety Report 13803492 (Version 1)
Quarter: 2017Q3

REPORT INFORMATION
  Report Type: Spontaneous
  Country: US (occurrence: US)
  Receive Date: 20170728
  Receipt Date: 20170728
  Transmission Date: 20171127
  Serious: Yes (Life-Threatening, Hospitalization, Other)
  Sender: FDA-Public Use
  Company Number: US-ACCORD-056179

PATIENT
  Age: 54 Year
  Sex: Male

DRUGS (4)
  1. ACETYLSALICYLIC ACID [Concomitant]
     Active Substance: ASPIRIN
  2. GEMCITABINE/GEMCITABINE HYDROCHLORIDE [Suspect]
     Active Substance: GEMCITABINE\GEMCITABINE HYDROCHLORIDE
     Indication: BLADDER CANCER STAGE II
  3. TAXOL [Suspect]
     Active Substance: PACLITAXEL
     Indication: BLADDER CANCER STAGE II
  4. CLOPIDOGREL [Concomitant]
     Active Substance: CLOPIDOGREL BISULFATE

REACTIONS (5)
  - Thrombocytopenia [Unknown]
  - Pulmonary embolism [Unknown]
  - Off label use [Unknown]
  - Acute myocardial infarction [Unknown]
  - Bone marrow failure [Unknown]
